FAERS Safety Report 5046372-9 (Version None)
Quarter: 2006Q3

REPORT INFORMATION
  Report Type: 
  Country: None (occurrence: None)
  Receive Date: 20060706
  Receipt Date: 20060706
  Transmission Date: 20061208
  Serious: Yes (Other)
  Sender: FDA-Public Use
  Company Number: None

PATIENT
  Age: 40 Year
  Sex: Female
  Weight: 54.4316 kg

DRUGS (1)
  1. CIPROFLOXACIN HCL [Suspect]
     Indication: ESCHERICHIA VAGINITIS
     Dosage: 250 MG BID PO
     Route: 048
     Dates: start: 20060629, end: 20060701

REACTIONS (9)
  - ABDOMINAL PAIN UPPER [None]
  - ARTHRALGIA [None]
  - BEDRIDDEN [None]
  - DIARRHOEA [None]
  - DYSSTASIA [None]
  - MUSCLE SPASMS [None]
  - NAUSEA [None]
  - ORAL INTAKE REDUCED [None]
  - VOMITING [None]
